FAERS Safety Report 24294024 (Version 1)
Quarter: 2024Q3

REPORT INFORMATION
  Report Type: Spontaneous
  Country: US (occurrence: None)
  Receive Date: 20240906
  Receipt Date: 20240906
  Transmission Date: 20241016
  Serious: No
  Sender: DOMPE FARMACEUTICI
  Company Number: US-FARMAPROD-202403-1025

PATIENT
  Age: 82 Year
  Sex: Female

DRUGS (21)
  1. OXERVATE [Suspect]
     Active Substance: CENEGERMIN-BKBJ
     Indication: Neurotrophic keratopathy
     Route: 047
     Dates: start: 20240313, end: 20240506
  2. OXERVATE [Suspect]
     Active Substance: CENEGERMIN-BKBJ
     Indication: Hypoaesthesia eye
  3. OXERVATE [Suspect]
     Active Substance: CENEGERMIN-BKBJ
     Indication: Macular degeneration
  4. REFRESH TEARS [Concomitant]
     Active Substance: CARBOXYMETHYLCELLULOSE SODIUM
  5. UNSPECIFIED INGREDIENT [Concomitant]
     Active Substance: UNSPECIFIED INGREDIENT
  6. EXCEDRIN MIGRAINE [Concomitant]
     Active Substance: ACETAMINOPHEN\ASPIRIN\CAFFEINE
     Dosage: 250-250-65
  7. PREMARIN [Concomitant]
     Active Substance: ESTROGENS, CONJUGATED
  8. MYRBETRIQ [Concomitant]
     Active Substance: MIRABEGRON
     Dosage: 24H
  9. BENZONATATE [Concomitant]
     Active Substance: BENZONATATE
  10. GABAPENTIN [Concomitant]
     Active Substance: GABAPENTIN
  11. METOPROLOL TARTRATE [Concomitant]
     Active Substance: METOPROLOL TARTRATE
  12. ELIQUIS [Concomitant]
     Active Substance: APIXABAN
  13. ROSUVASTATIN CALCIUM [Concomitant]
     Active Substance: ROSUVASTATIN CALCIUM
  14. CENTRUM SILVER WOMEN [Concomitant]
  15. XANAX [Concomitant]
     Active Substance: ALPRAZOLAM
  16. SYNTHROID [Concomitant]
     Active Substance: LEVOTHYROXINE SODIUM
  17. NAPROXEN [Concomitant]
     Active Substance: NAPROXEN
  18. TIMOLOL MALEATE [Concomitant]
     Active Substance: TIMOLOL MALEATE
  19. LATANOPROST [Concomitant]
     Active Substance: LATANOPROST
  20. FAMCICLOVIR [Concomitant]
     Active Substance: FAMCICLOVIR
  21. TYLENOL [Concomitant]
     Active Substance: ACETAMINOPHEN

REACTIONS (4)
  - Accidental overdose [Recovered/Resolved]
  - Eye pain [Not Recovered/Not Resolved]
  - Eye irritation [Unknown]
  - Headache [Unknown]

NARRATIVE: CASE EVENT DATE: 20240313
